FAERS Safety Report 11045724 (Version 1)
Quarter: 2015Q2

REPORT INFORMATION
  Report Type: Spontaneous
  Country: BR (occurrence: BR)
  Receive Date: 20150417
  Receipt Date: 20150417
  Transmission Date: 20150821
  Serious: Yes (Other)
  Sender: FDA-Public Use
  Company Number: PHHY2015BR045653

PATIENT
  Age: 32 Year
  Sex: Male

DRUGS (1)
  1. RITALIN [Suspect]
     Active Substance: METHYLPHENIDATE HYDROCHLORIDE
     Indication: NARCOLEPSY
     Dosage: UNK UKN, UNK
     Route: 065

REACTIONS (5)
  - Hallucination [Unknown]
  - Drug intolerance [Unknown]
  - Drug ineffective [Unknown]
  - Sleep attacks [Unknown]
  - Middle insomnia [Unknown]
